FAERS Safety Report 6434620-X (Version None)
Quarter: 2009Q4

REPORT INFORMATION
  Report Type: 
  Country: None (occurrence: None)
  Receive Date: 20091110
  Receipt Date: 20091030
  Transmission Date: 20100525
  Serious: Yes (Hospitalization)
  Sender: FDA-Public Use
  Company Number: B0600644A

PATIENT
  Age: 68 Year
  Sex: Male

DRUGS (3)
  1. ASPIRIN [Suspect]
  2. LOVAZA [Suspect]
     Route: 048
  3. CLOPIDOGREL [Suspect]

REACTIONS (1)
  - RECTAL HAEMORRHAGE [None]
